FAERS Safety Report 8475693-2 (Version None)
Quarter: 2012Q2

REPORT INFORMATION
  Report Type: 
  Country: None (occurrence: None)
  Receive Date: 20120628
  Receipt Date: 20120313
  Transmission Date: 20120825
  Serious: Yes (Other)
  Sender: FDA-Public Use
  Company Number: US-GLAXOSMITHKLINE-A0969670A

PATIENT
  Age: 40 Year
  Sex: Female
  Weight: 128.2 kg

DRUGS (1)
  1. ARIXTRA [Suspect]
     Indication: EMBOLISM VENOUS
     Dosage: 10MG UNKNOWN
     Route: 065
     Dates: start: 20120127

REACTIONS (3)
  - GASTRIC HAEMORRHAGE [None]
  - OCCULT BLOOD POSITIVE [None]
  - VOMITING [None]
